FAERS Safety Report 4338754-5 (Version None)
Quarter: 2004Q2

REPORT INFORMATION
  Report Type: 
  Country: None (occurrence: None)
  Receive Date: 20040409
  Receipt Date: 20040405
  Transmission Date: 20050107
  Serious: Yes (Other)
  Sender: FDA-Public Use
  Company Number: 2004205111US

PATIENT
  Age: 64 Year
  Sex: Female
  Weight: 75.7 kg

DRUGS (5)
  1. ALDACTONE [Suspect]
     Dates: start: 19860101, end: 19970101
  2. DYAZIDE [Concomitant]
  3. LASIX [Concomitant]
  4. SYNTHROID [Concomitant]
  5. SLOW-K [Concomitant]

REACTIONS (5)
  - ADENOMA BENIGN [None]
  - BREAST CANCER FEMALE [None]
  - HYPOKALAEMIA [None]
  - OEDEMA [None]
  - PAIN [None]
